FAERS Safety Report 7391795-6 (Version None)
Quarter: 2011Q2

REPORT INFORMATION
  Report Type: 
  Country: None (occurrence: None)
  Receive Date: 20110404
  Receipt Date: 20110325
  Transmission Date: 20111010
  Serious: Yes (Hospitalization)
  Sender: FDA-Public Use
  Company Number: FR-TEVA-274280ISR

PATIENT
  Sex: Male
  Weight: 59 kg

DRUGS (5)
  1. LENALIDOMIDE (CC-5013) [Suspect]
     Route: 048
     Dates: start: 20101209, end: 20110105
  2. LENALIDOMIDE (CC-5013) [Suspect]
     Indication: MULTIPLE MYELOMA
     Route: 048
     Dates: start: 20100722
  3. ANTITHROMBOTIC AGENTS [Concomitant]
     Indication: THROMBOSIS PROPHYLAXIS
  4. DEXAMETHASONE [Suspect]
     Indication: MULTIPLE MYELOMA
     Dates: start: 20100722
  5. DEXAMETHASONE [Suspect]
     Dates: start: 20101209, end: 20110105

REACTIONS (1)
  - ASTHENIA [None]
